FAERS Safety Report 4328840-8 (Version None)
Quarter: 2004Q1

REPORT INFORMATION
  Report Type: 
  Country: None (occurrence: None)
  Receive Date: 20040329
  Receipt Date: 20040114
  Transmission Date: 20041129
  Serious: No
  Sender: FDA-Public Use
  Company Number: 04P-163-0247231-00

PATIENT
  Age: 69 Year
  Sex: Female
  Weight: 57.1532 kg

DRUGS (11)
  1. HUMIRA [Suspect]
     Indication: RHEUMATOID ARTHRITIS
     Dosage: 40 MG, 1 IN 2 WK, SUBCUTANEOUS
     Route: 058
     Dates: start: 20031103
  2. ACETAMINOPHEN W/ CODEINE [Concomitant]
  3. IBUPROFEN [Concomitant]
  4. WARFARIN SODIUM [Concomitant]
  5. FOLIC ACID [Concomitant]
  6. ATORVASTATIN [Concomitant]
  7. PREDNISONE [Concomitant]
  8. POTASSIUM [Concomitant]
  9. FUROSEMIDE [Concomitant]
  10. METHOTREXATE [Concomitant]
  11. DILTIAZEM [Concomitant]

REACTIONS (1)
  - ARTHRALGIA [None]
